FAERS Safety Report 24285493 (Version 2)
Quarter: 2024Q3

REPORT INFORMATION
  Report Type: Spontaneous
  Country: ES (occurrence: ES)
  Receive Date: 20240905
  Receipt Date: 20240906
  Transmission Date: 20241017
  Serious: Yes (Other)
  Sender: BAYER
  Company Number: ES-BAYER-2024A126621

PATIENT
  Sex: Female

DRUGS (1)
  1. LEVONORGESTREL [Suspect]
     Active Substance: LEVONORGESTREL

REACTIONS (4)
  - Device breakage [None]
  - Procedural haemorrhage [None]
  - Complication of device insertion [None]
  - Device use issue [None]
